FAERS Safety Report 10082952 (Version 3)
Quarter: 2014Q2

REPORT INFORMATION
  Report Type: Report from Study
  Country: DE (occurrence: DE)
  Receive Date: 20140417
  Receipt Date: 20140502
  Transmission Date: 20141212
  Serious: Yes (Hospitalization)
  Sender: FDA-Public Use
  Company Number: DE-ROCHE-1377341

PATIENT
  Age: 59 Year
  Sex: Male
  Weight: 78.5 kg

DRUGS (9)
  1. BEVACIZUMAB [Suspect]
     Indication: COLON CANCER
     Dosage: LAST DOSE (5MG) PRIOR TO SAE REPORTED AS ON 02/APR/2014
     Route: 065
     Dates: start: 20140121
  2. OXALIPLATIN [Suspect]
     Indication: COLON CANCER
     Dosage: LAST DOSE (85MG/M2)  PRIOR TO SAE REPORTED AS ON 02/APR/2014.
     Route: 065
     Dates: start: 20140121
  3. FOLINIC ACID [Suspect]
     Indication: COLON CANCER
     Dosage: LAST DOSE (200MG/M2) PRIOR TO SAE REPORTED AS ON 02/APR/2014
     Route: 065
     Dates: start: 20140121
  4. FLUOROURACIL [Suspect]
     Indication: COLON CANCER
     Dosage: LAST DOSE (3200MG/M2) PRIOR TO SAE REPORTED AS ON 19/MAR/2014
     Route: 065
     Dates: start: 20140121, end: 20140402
  5. FLUOROURACIL [Suspect]
     Route: 065
     Dates: start: 20140423
  6. IRINOTECAN [Suspect]
     Indication: COLON CANCER
     Dosage: LAST DOSE (165MG/M2) PRIOR TO SAE REPORTED AS ON 02/APR/2014
     Route: 065
     Dates: start: 20140121
  7. NEBIVOLOL [Concomitant]
     Indication: HYPERTENSION
     Route: 048
     Dates: start: 201312
  8. FILGRASTIM [Concomitant]
     Indication: LEUKOPENIA
     Dosage: DOSE: 48 MIOE
     Route: 058
     Dates: start: 20140403, end: 20140404
  9. FILGRASTIM [Concomitant]
     Dosage: DOSE: 48 MIOE
     Route: 058
     Dates: start: 20140407

REACTIONS (1)
  - Diarrhoea [Recovered/Resolved]
